FAERS Safety Report 7947131-7 (Version None)
Quarter: 2011Q4

REPORT INFORMATION
  Report Type: 
  Country: None (occurrence: None)
  Receive Date: 20111129
  Receipt Date: 20111121
  Transmission Date: 20120403
  Serious: Yes (Death, Other)
  Sender: FDA-Public Use
  Company Number: ES-ASTRAZENECA-2011SE68465

PATIENT
  Age: 47 Year
  Sex: Female
  Weight: 116 kg

DRUGS (4)
  1. LECARDIPINO [Concomitant]
     Indication: HYPERTENSION
     Dosage: 20 DAILY
     Route: 048
  2. IRBESARTAN-HYDROCHLOROTIAZIDE [Concomitant]
     Indication: HYPERTENSION
     Dosage: 300-12.5 DAILY
     Route: 048
  3. TIROXINA [Concomitant]
     Indication: HYPOTHYROIDISM
     Dosage: 175 DAILY
     Route: 048
     Dates: start: 20080501
  4. VANDETANIB [Suspect]
     Route: 048
     Dates: start: 20110824, end: 20110909

REACTIONS (4)
  - HYPOCALCAEMIA [None]
  - BLOOD POTASSIUM DECREASED [None]
  - ELECTROCARDIOGRAM QT PROLONGED [None]
  - NEOPLASM PROGRESSION [None]
